FAERS Safety Report 10191894 (Version 1)
Quarter: 2014Q2

REPORT INFORMATION
  Report Type: Spontaneous
  Country: IN (occurrence: IN)
  Receive Date: 20140523
  Receipt Date: 20140523
  Transmission Date: 20141212
  Serious: Yes (Other)
  Sender: FDA-Public Use
  Company Number: IN-ACTAVIS-2014-10221

PATIENT
  Age: 55 Year
  Sex: Female

DRUGS (2)
  1. PACLITAXEL (UNKNOWN) [Suspect]
     Indication: ADENOCARCINOMA OF THE CERVIX
     Dosage: UNKNOWN - 2 CYCLES
     Route: 065
  2. CARBOPLATIN [Concomitant]
     Indication: ADENOCARCINOMA OF THE CERVIX
     Dosage: UNKNOWN - 2 CYLCES
     Route: 065

REACTIONS (1)
  - Systemic lupus erythematosus [Recovered/Resolved]
